FAERS Safety Report 4685229-X (Version None)
Quarter: 2005Q2

REPORT INFORMATION
  Report Type: 
  Country: None (occurrence: None)
  Receive Date: 20050607
  Receipt Date: 20050603
  Transmission Date: 20051028
  Serious: Yes (Other)
  Sender: FDA-Public Use
  Company Number: 05-06-0969

PATIENT
  Age: 67 Year
  Sex: Female
  Weight: 44 kg

DRUGS (5)
  1. METFORMIN HCL [Suspect]
     Indication: DIABETES MELLITUS
     Dosage: ORAL
     Route: 048
  2. LISINOPRIL [Suspect]
     Indication: HYPERTENSION
     Dosage: ORAL
     Route: 048
  3. GLICLAZIDE [Concomitant]
  4. OMEPRAZOLE [Concomitant]
  5. THYOPHILLINE [Concomitant]

REACTIONS (1)
  - RENAL FAILURE ACUTE [None]
